FAERS Safety Report 15591085 (Version 1)
Quarter: 2018Q4

REPORT INFORMATION
  Report Type: Spontaneous
  Country: US (occurrence: US)
  Receive Date: 20181106
  Receipt Date: 20181106
  Transmission Date: 20190205
  Serious: Yes (Hospitalization)
  Sender: FDA-Public Use
  Company Number: None

PATIENT
  Age: 62 Year
  Sex: Female

DRUGS (1)
  1. AIMOVIG [Suspect]
     Active Substance: ERENUMAB-AOOE
     Indication: MIGRAINE
     Dosage: 70 MG/ML EVERY 28 DAYS; SUBCUTANEOUS?
     Route: 058
     Dates: start: 20180807

REACTIONS (3)
  - Abdominal pain [None]
  - Gastrointestinal hypomotility [None]
  - Constipation [None]

NARRATIVE: CASE EVENT DATE: 20180815
